FAERS Safety Report 5086085-0 (Version None)
Quarter: 2006Q3

REPORT INFORMATION
  Report Type: 
  Country: None (occurrence: None)
  Receive Date: 20060817
  Receipt Date: 20060810
  Transmission Date: 20061208
  Serious: Yes (Hospitalization)
  Sender: FDA-Public Use
  Company Number: HQWYE618001JUN06

PATIENT
  Age: 85 Year
  Sex: Female

DRUGS (1)
  1. PANTOPRAZOLE SODIUM [Suspect]

REACTIONS (3)
  - AMNESIA [None]
  - DEMENTIA [None]
  - HALLUCINATION, AUDITORY [None]
